FAERS Safety Report 8311494-3 (Version None)
Quarter: 2012Q2

REPORT INFORMATION
  Report Type: 
  Country: None (occurrence: None)
  Receive Date: 20120425
  Receipt Date: 20120130
  Transmission Date: 20120825
  Serious: No
  Sender: FDA-Public Use
  Company Number: US-MYLANLABS-2011S1018357

PATIENT
  Sex: Female

DRUGS (2)
  1. LIOTHYRONINE SODIUM [Suspect]
     Dates: start: 20110201
  2. LIOTHYRONINE SODIUM [Suspect]
     Indication: AUTOIMMUNE THYROIDITIS
     Dates: start: 20110201, end: 20110201

REACTIONS (3)
  - DRUG EFFECT DECREASED [None]
  - TRI-IODOTHYRONINE ABNORMAL [None]
  - CONSTIPATION [None]
